FAERS Safety Report 6628627-7 (Version None)
Quarter: 2010Q1

REPORT INFORMATION
  Report Type: 
  Country: None (occurrence: None)
  Receive Date: 20100310
  Receipt Date: 20100310
  Transmission Date: 20100710
  Serious: Yes (Other)
  Sender: FDA-Public Use
  Company Number: None

PATIENT
  Sex: Male
  Weight: 143.3367 kg

DRUGS (1)
  1. COUMADIN [Suspect]
     Indication: HYPERCOAGULATION
     Dosage: COUMADIN QD

REACTIONS (2)
  - INTERNATIONAL NORMALISED RATIO FLUCTUATION [None]
  - PRODUCT SUBSTITUTION ISSUE [None]
